FAERS Safety Report 9523733 (Version 4)
Quarter: 2016Q3

REPORT INFORMATION
  Report Type: Spontaneous
  Country: FR (occurrence: FR)
  Receive Date: 20130914
  Receipt Date: 20160704
  Transmission Date: 20161109
  Serious: Yes (Death, Hospitalization)
  Sender: FDA-Public Use
  Company Number: FR-ROCHE-1275724

PATIENT
  Age: 70 Year
  Sex: Female
  Weight: 69 kg

DRUGS (23)
  1. MABTHERA [Suspect]
     Active Substance: RITUXIMAB
     Indication: RHEUMATOID ARTHRITIS
     Dosage: D1
     Route: 042
     Dates: start: 20080926
  2. MABTHERA [Suspect]
     Active Substance: RITUXIMAB
     Dosage: D15
     Route: 042
     Dates: start: 20081010
  3. XANAX [Concomitant]
     Active Substance: ALPRAZOLAM
     Dosage: 0.50 1 DOSE IN THE EVENING
     Route: 065
  4. ROACTEMRA [Suspect]
     Active Substance: TOCILIZUMAB
     Indication: RHEUMATOID ARTHRITIS
     Dosage: 40 INFUSION
     Route: 042
     Dates: start: 20100410
  5. ROACTEMRA [Suspect]
     Active Substance: TOCILIZUMAB
     Route: 042
     Dates: start: 20130708, end: 20130708
  6. CORTANCYL [Suspect]
     Active Substance: PREDNISONE
     Indication: RHEUMATOID ARTHRITIS
     Route: 048
     Dates: start: 2007, end: 20130731
  7. MABTHERA [Suspect]
     Active Substance: RITUXIMAB
     Dosage: D15
     Route: 042
     Dates: start: 20091021, end: 20100223
  8. FOSAVANCE [Concomitant]
     Active Substance: ALENDRONATE SODIUM\CHOLECALCIFEROL
     Dosage: 1/WEEK
     Route: 065
  9. METHYLPREDNISOLONE. [Concomitant]
     Active Substance: METHYLPREDNISOLONE
     Route: 065
  10. MABTHERA [Suspect]
     Active Substance: RITUXIMAB
     Dosage: D15
     Route: 042
     Dates: start: 20090408
  11. IMETH [Concomitant]
     Active Substance: METHOTREXATE SODIUM
     Indication: RHEUMATOID ARTHRITIS
     Route: 048
     Dates: start: 2007, end: 2013
  12. DAFALGAN [Concomitant]
     Active Substance: ACETAMINOPHEN
     Route: 065
  13. METHOTREXATE. [Concomitant]
     Active Substance: METHOTREXATE
     Dosage: 20 MG/W STOPPED FROM 06/OCT/2010 TO 05/NOV/2010
     Route: 065
  14. ROACTEMRA [Suspect]
     Active Substance: TOCILIZUMAB
     Route: 042
     Dates: start: 20100421
  15. MABTHERA [Suspect]
     Active Substance: RITUXIMAB
     Dosage: D1
     Route: 042
     Dates: start: 20090325
  16. ROACTEMRA [Suspect]
     Active Substance: TOCILIZUMAB
     Route: 042
     Dates: start: 20130401
  17. ROACTEMRA [Suspect]
     Active Substance: TOCILIZUMAB
     Route: 042
     Dates: start: 20130513
  18. PARACETAMOL [Concomitant]
     Active Substance: ACETAMINOPHEN
  19. MABTHERA [Suspect]
     Active Substance: RITUXIMAB
     Dosage: D1
     Route: 042
     Dates: start: 20091006
  20. APROVEL [Concomitant]
     Active Substance: IRBESARTAN
     Dosage: 300 1 DOSE IN THE EVENING
     Route: 065
  21. DIFFU K [Concomitant]
     Active Substance: POTASSIUM CHLORIDE
     Dosage: 1 DOSE IN THE MORNING
     Route: 065
  22. OMEPRAZOLE. [Concomitant]
     Active Substance: OMEPRAZOLE
     Dosage: 10 1 DOSE IN THE EVENING
     Route: 065
  23. ROACTEMRA [Suspect]
     Active Substance: TOCILIZUMAB
     Route: 042
     Dates: start: 20130610

REACTIONS (10)
  - Peritonitis [Fatal]
  - Septic shock [Fatal]
  - Infusion related reaction [Recovered/Resolved]
  - Aphthous ulcer [Unknown]
  - Back pain [Recovered/Resolved]
  - Neoplasm [Recovered/Resolved]
  - Mouth ulceration [Recovered/Resolved]
  - Multiple organ dysfunction syndrome [Fatal]
  - Perforation [Fatal]
  - Noninfective gingivitis [Unknown]

NARRATIVE: CASE EVENT DATE: 20080926
